FAERS Safety Report 22921638 (Version 2)
Quarter: 2023Q4

REPORT INFORMATION
  Report Type: Report from Study
  Country: US (occurrence: US)
  Receive Date: 20230908
  Receipt Date: 20231001
  Transmission Date: 20240110
  Serious: Yes (Other)
  Sender: FDA-Public Use
  Company Number: US-JNJFOC-20230900398

PATIENT
  Age: 51 Year
  Sex: Female
  Weight: 63.56 kg

DRUGS (3)
  1. SPRAVATO [Interacting]
     Active Substance: ESKETAMINE
     Indication: Depression
     Dosage: ^84 MG, 3 TOTAL DOSES^
     Dates: start: 20230815, end: 20230822
  2. SPRAVATO [Interacting]
     Active Substance: ESKETAMINE
     Dosage: ^84 MG, 1 TOTAL DOSE^
     Dates: start: 20230829, end: 20230829
  3. SUDAFED NASAL DECONGESTANT MAXIMUM STRENGTH [Interacting]
     Active Substance: PSEUDOEPHEDRINE HYDROCHLORIDE
     Indication: Nasopharyngitis
     Dosage: 60 MG
     Route: 048

REACTIONS (12)
  - Suicidal ideation [Recovered/Resolved]
  - Agitation [Recovered/Resolved]
  - Crying [Recovered/Resolved]
  - Vomiting [Recovered/Resolved]
  - Intentional self-injury [Recovered/Resolved]
  - Drug interaction [Recovered/Resolved]
  - Dyspnoea [Recovered/Resolved]
  - Disturbance in social behaviour [Recovered/Resolved]
  - Illness [Recovered/Resolved]
  - Nasopharyngitis [Unknown]
  - Depression [Recovered/Resolved]
  - Dissociation [Recovered/Resolved]

NARRATIVE: CASE EVENT DATE: 20230801
